FAERS Safety Report 17163134 (Version 2)
Quarter: 2019Q4

REPORT INFORMATION
  Report Type: Spontaneous
  Country: JP (occurrence: JP)
  Receive Date: 20191217
  Receipt Date: 20191220
  Transmission Date: 20200122
  Serious: Yes (Other)
  Sender: FDA-Public Use
  Company Number: JP-VIIV HEALTHCARE LIMITED-JP2019228009

PATIENT
  Sex: Female

DRUGS (7)
  1. ENTECAVIR HYDRATE [Concomitant]
     Indication: HEPATITIS B
     Dosage: UNK
     Route: 065
  2. ZEFIX [Suspect]
     Active Substance: LAMIVUDINE
     Indication: CHRONIC HEPATITIS B
     Dosage: UNK
     Route: 048
  3. VIREAD [Suspect]
     Active Substance: TENOFOVIR DISOPROXIL FUMARATE
     Indication: HEPATITIS B
     Dosage: UNK
     Route: 048
  4. HEPSERA [Suspect]
     Active Substance: ADEFOVIR DIPIVOXIL
     Indication: HEPATITIS B
     Dosage: UNK
     Route: 048
  5. ENTECAVIR HYDRATE [Concomitant]
     Dosage: UNK
     Route: 065
  6. VEMLIDY [Concomitant]
     Active Substance: TENOFOVIR ALAFENAMIDE FUMARATE
     Indication: HEPATITIS B
     Dosage: UNK
     Route: 065
  7. HEPSERA [Suspect]
     Active Substance: ADEFOVIR DIPIVOXIL
     Dosage: UNK
     Route: 048

REACTIONS (4)
  - Abdominal pain upper [Unknown]
  - Dyspepsia [Unknown]
  - Chronic gastritis [Unknown]
  - Gastric ulcer [Recovering/Resolving]
